FAERS Safety Report 5223612-4 (Version None)
Quarter: 2007Q1

REPORT INFORMATION
  Report Type: 
  Country: None (occurrence: None)
  Receive Date: 20070116
  Receipt Date: 20070101
  Transmission Date: 20070707
  Serious: Yes (Death)
  Sender: FDA-Public Use
  Company Number: THYM-11199

PATIENT
  Age: 29 Year
  Sex: Female
  Weight: 50.8 kg

DRUGS (11)
  1. THYMOGLOBULIN [Suspect]
     Indication: PROPHYLAXIS AGAINST GRAFT VERSUS HOST DISEASE
     Dosage: 25 MG ONCE IV
     Route: 042
     Dates: start: 20061213, end: 20061213
  2. THYMOGLOBULIN [Suspect]
     Indication: PROPHYLAXIS AGAINST GRAFT VERSUS HOST DISEASE
     Dosage: 100 MG ONCE IV
     Route: 042
     Dates: start: 20061214, end: 20061214
  3. THYMOGLOBULIN [Suspect]
     Indication: PROPHYLAXIS AGAINST GRAFT VERSUS HOST DISEASE
     Dosage: 125 MG QD IV
     Route: 042
     Dates: start: 20061215, end: 20061216
  4. FLUDARA [Concomitant]
  5. BUSULFEX [Concomitant]
  6. HYDROCORTISONE [Concomitant]
  7. FUSID [Concomitant]
  8. SOLU-MEDROL [Concomitant]
  9. ADRENALINE [Concomitant]
  10. BI-CARBONATE [Concomitant]
  11. DOPAMINE HCL [Concomitant]

REACTIONS (6)
  - BLOOD CREATINE INCREASED [None]
  - DYSPNOEA [None]
  - ENGRAFTMENT SYNDROME [None]
  - PERITONEAL DIALYSIS [None]
  - PLEURAL EFFUSION [None]
  - PYREXIA [None]
